FAERS Safety Report 5425969-8 (Version None)
Quarter: 2007Q3

REPORT INFORMATION
  Report Type: 
  Country: None (occurrence: None)
  Receive Date: 20070827
  Receipt Date: 20070814
  Transmission Date: 20080115
  Serious: Yes (Hospitalization)
  Sender: FDA-Public Use
  Company Number: AU-NOVOPROD-266196

PATIENT
  Age: 12 Year
  Weight: 38 kg

DRUGS (7)
  1. NORDITROPIN [Suspect]
     Indication: BODY HEIGHT BELOW NORMAL
     Dosage: 1.4 MG, QD
     Route: 058
     Dates: start: 20060223
  2. AZAPRINE [Concomitant]
     Dosage: 50 MG, QD
     Route: 048
     Dates: start: 20010512
  3. PREDNISOLONE [Concomitant]
     Dosage: 5 MG, QD
     Route: 048
     Dates: start: 20010512
  4. TACROLIMUS [Concomitant]
     Dosage: 12 MG, QD
     Route: 048
     Dates: start: 20010512
  5. ISOTRETINOIN [Concomitant]
     Dosage: 10 MG, UNK
     Route: 048
     Dates: start: 20051006
  6. ENALAPRIL [Concomitant]
     Dosage: 5 MG, QD
     Route: 048
     Dates: start: 20051208
  7. PARACETAMOL [Concomitant]
     Dosage: 2000 MG, QD
     Route: 048
     Dates: start: 20070507, end: 20070601

REACTIONS (2)
  - ARNOLD-CHIARI MALFORMATION [None]
  - NECK PAIN [None]
